FAERS Safety Report 5215230-9 (Version None)
Quarter: 2006Q4

REPORT INFORMATION
  Report Type: 
  Country: None (occurrence: None)
  Receive Date: 20061120
  Receipt Date: 20060303
  Transmission Date: 20070319
  Serious: Yes (Other)
  Sender: FDA-Public Use
  Company Number: HQWYE223909MAR06

PATIENT
  Age: 59 Year
  Sex: Female
  Weight: 86.26 kg

DRUGS (4)
  1. ADVIL COLD AND SINUS [Suspect]
     Dosage: 1 TABLET ONCE, ORAL
     Route: 048
     Dates: start: 20060201, end: 20060201
  2. MOBIC [Concomitant]
  3. DARVOCET-N 50 [Concomitant]
  4. PREMARIN [Concomitant]

REACTIONS (2)
  - COLD SWEAT [None]
  - HEART RATE INCREASED [None]
